FAERS Safety Report 6030273-3 (Version None)
Quarter: 2009Q1

REPORT INFORMATION
  Report Type: 
  Country: None (occurrence: None)
  Receive Date: 20090107
  Receipt Date: 20081229
  Transmission Date: 20090719
  Serious: Yes (Other)
  Sender: FDA-Public Use
  Company Number: DE-SANOFI-SYNTHELABO-A04200801481

PATIENT
  Sex: Female

DRUGS (2)
  1. CAPECITABINE [Suspect]
     Indication: COLORECTAL CANCER METASTATIC
     Dosage: 1000 MG
     Route: 048
     Dates: start: 20080901
  2. OXALIPLATIN [Suspect]
     Indication: COLORECTAL CANCER METASTATIC
     Route: 041
     Dates: start: 20080101, end: 20080101

REACTIONS (2)
  - POLYNEUROPATHY [None]
  - RAYNAUD'S PHENOMENON [None]
